FAERS Safety Report 8432175-1 (Version None)
Quarter: 2012Q2

REPORT INFORMATION
  Report Type: 
  Country: None (occurrence: None)
  Receive Date: 20120607
  Receipt Date: 20120523
  Transmission Date: 20120825
  Serious: Yes (Other)
  Sender: FDA-Public Use
  Company Number: 2012MA006710

PATIENT
  Age: 53 Year
  Sex: Female

DRUGS (3)
  1. MIRTAZAPINE [Suspect]
     Indication: SLEEP DISORDER
     Dosage: 7.5 MG;QD;PO
     Route: 048
     Dates: start: 20101119
  2. VENLAFAXINE HYDROCHLORIDE [Suspect]
     Indication: DEPRESSION
     Dosage: 75 MG;QD;PO
     Route: 048
     Dates: start: 20111111
  3. MIRTAZAPINE [Suspect]
     Indication: SLEEP DISORDER
     Dosage: 7.5 MG;QD;PO
     Route: 048
     Dates: start: 20101119

REACTIONS (11)
  - SPEECH DISORDER [None]
  - HOT FLUSH [None]
  - HYPERHIDROSIS [None]
  - PSYCHOMOTOR RETARDATION [None]
  - GAIT DISTURBANCE [None]
  - CHILLS [None]
  - SEROTONIN SYNDROME [None]
  - APHASIA [None]
  - HEADACHE [None]
  - TACHYCARDIA [None]
  - THINKING ABNORMAL [None]
